FAERS Safety Report 7645509-2 (Version None)
Quarter: 2011Q3

REPORT INFORMATION
  Report Type: 
  Country: None (occurrence: None)
  Receive Date: 20110729
  Receipt Date: 20110725
  Transmission Date: 20111222
  Serious: Yes (Death)
  Sender: FDA-Public Use
  Company Number: US-ABBOTT-11P-163-0731584-00

PATIENT
  Sex: Male
  Weight: 106.69 kg

DRUGS (4)
  1. PRILOSEC [Concomitant]
     Indication: PRODUCT USED FOR UNKNOWN INDICATION
  2. ETODOLAC [Concomitant]
     Indication: PRODUCT USED FOR UNKNOWN INDICATION
  3. TRAMADOL HCL [Concomitant]
     Indication: PRODUCT USED FOR UNKNOWN INDICATION
  4. HUMIRA [Suspect]
     Indication: PSORIASIS
     Dates: start: 20090101, end: 20110609

REACTIONS (8)
  - DEATH [None]
  - SKIN DISORDER [None]
  - MYOCARDIAL INFARCTION [None]
  - SKIN FRAGILITY [None]
  - ABNORMAL BEHAVIOUR [None]
  - ALOPECIA [None]
  - MOOD ALTERED [None]
  - SKIN ATROPHY [None]
